FAERS Safety Report 5076755-2 (Version None)
Quarter: 2006Q3

REPORT INFORMATION
  Report Type: 
  Country: None (occurrence: None)
  Receive Date: 20060725
  Receipt Date: 20060508
  Transmission Date: 20061208
  Serious: Yes (Other)
  Sender: FDA-Public Use
  Company Number: 200612913BWH

PATIENT
  Age: 64 Year
  Sex: Female

DRUGS (11)
  1. NEXAVAR [Suspect]
     Dosage: SEE IMAGE
     Route: 048
     Dates: start: 20060412, end: 20060401
  2. NORVASC [Concomitant]
  3. LEXAPRO [Concomitant]
  4. EVISTA [Concomitant]
  5. NEXIUM [Concomitant]
  6. MIRAPEX [Concomitant]
  7. VESICARE [Concomitant]
  8. RISPERDAL [Concomitant]
  9. CYMBALTA [Concomitant]
  10. CRESTOR [Concomitant]
  11. FERREX FORTE [Concomitant]

REACTIONS (4)
  - BLISTER [None]
  - BLOOD PRESSURE INCREASED [None]
  - PALMAR-PLANTAR ERYTHRODYSAESTHESIA SYNDROME [None]
  - RASH [None]
